FAERS Safety Report 5556849-5 (Version None)
Quarter: 2007Q4

REPORT INFORMATION
  Report Type: 
  Country: None (occurrence: None)
  Receive Date: 20071210
  Receipt Date: 20071210
  Transmission Date: 20080405
  Serious: Yes (Life-Threatening)
  Sender: FDA-Public Use
  Company Number: None

PATIENT
  Age: 30 Year
  Sex: Male
  Weight: 75 kg

DRUGS (3)
  1. DICLOFENAC SODIUM [Suspect]
     Indication: GASTROINTESTINAL HAEMORRHAGE
     Dosage: 100 MG BID PR
     Dates: start: 20070704, end: 20070708
  2. DICLOFENAC SODIUM [Suspect]
     Indication: INTESTINAL FISTULA
     Dosage: 100 MG BID PR
     Dates: start: 20070704, end: 20070708
  3. ENOXAPARIN SODIUM [Suspect]
     Dosage: 40 MG QD SC
     Route: 058
     Dates: start: 20070624, end: 20070708

REACTIONS (1)
  - HAEMORRHAGE [None]
